FAERS Safety Report 4911833-7 (Version None)
Quarter: 2006Q1

REPORT INFORMATION
  Report Type: 
  Country: None (occurrence: None)
  Receive Date: 20060213
  Receipt Date: 20060213
  Transmission Date: 20060701
  Serious: Yes (Hospitalization)
  Sender: FDA-Public Use
  Company Number: None

PATIENT
  Age: 69 Year
  Sex: Male
  Weight: 104.4 kg

DRUGS (3)
  1. AMIODARONE [Suspect]
     Indication: ARRHYTHMIA
     Dosage: 200MG  BID   PO
     Route: 048
  2. AMIODARONE [Suspect]
     Indication: POST PROCEDURAL COMPLICATION
     Dosage: 200MG  BID   PO
     Route: 048
  3. WARFARIN [Suspect]
     Indication: CARDIAC VALVE DISEASE
     Dosage: 10MG   QPM    PO
     Route: 048

REACTIONS (3)
  - HAEMORRHAGE INTRACRANIAL [None]
  - HEMIPARESIS [None]
  - INTERNATIONAL NORMALISED RATIO INCREASED [None]
